FAERS Safety Report 24588912 (Version 3)
Quarter: 2024Q4

REPORT INFORMATION
  Report Type: Spontaneous
  Country: BR (occurrence: BR)
  Receive Date: 20241107
  Receipt Date: 20241223
  Transmission Date: 20250114
  Serious: Yes (Other)
  Sender: PFIZER
  Company Number: BR-TAKEDA-2024TUS110491

PATIENT
  Age: 75 Year
  Sex: Female
  Weight: 68 kg

DRUGS (9)
  1. PANTOPRAZOLE [Suspect]
     Active Substance: PANTOPRAZOLE
     Dosage: UNK
     Route: 065
  2. VONOPRAZAN FUMARATE [Suspect]
     Active Substance: VONOPRAZAN FUMARATE
     Indication: Dyspepsia
     Dosage: 10 MILLIGRAM, QD
     Route: 065
  3. VONOPRAZAN FUMARATE [Suspect]
     Active Substance: VONOPRAZAN FUMARATE
     Indication: Incisional hernia
     Dosage: 10 MILLIGRAM, QD
     Route: 065
  4. LOSARTAN [Concomitant]
     Active Substance: LOSARTAN
     Indication: Hypertension
     Dosage: UNK
  5. METFORMIN HYDROCHLORIDE [Concomitant]
     Active Substance: METFORMIN HYDROCHLORIDE
     Indication: Glucose tolerance impaired
     Dosage: UNK
  6. DAPAGLIFLOZIN [Concomitant]
     Active Substance: DAPAGLIFLOZIN
     Indication: Blood triglycerides abnormal
     Dosage: UNK
  7. CLOPIDOGREL BISULFATE [Concomitant]
     Active Substance: CLOPIDOGREL BISULFATE
     Indication: Anticoagulant therapy
     Dosage: UNK
  8. ASPIRIN [Concomitant]
     Active Substance: ASPIRIN
     Indication: Anticoagulant therapy
     Dosage: UNK
  9. LIVALO [Concomitant]
     Active Substance: PITAVASTATIN CALCIUM
     Indication: Blood cholesterol abnormal
     Dosage: UNK

REACTIONS (9)
  - Incisional hernia [Unknown]
  - Chronic gastritis [Unknown]
  - Gastrointestinal mucosal disorder [Unknown]
  - Gastrooesophageal reflux disease [Recovering/Resolving]
  - Dyspepsia [Recovering/Resolving]
  - Oesophagitis [Unknown]
  - Helicobacter infection [Unknown]
  - Drug ineffective [Unknown]
  - Wrong technique in product usage process [Unknown]

NARRATIVE: CASE EVENT DATE: 20240101
